FAERS Safety Report 9387954 (Version 1)
Quarter: 2013Q3

REPORT INFORMATION
  Report Type: Spontaneous
  Country: US (occurrence: US)
  Receive Date: 20130708
  Receipt Date: 20130708
  Transmission Date: 20140515
  Serious: No
  Sender: FDA-Public Use
  Company Number: US-009507513-1306USA013438

PATIENT
  Age: 49 Year
  Sex: Male

DRUGS (6)
  1. HYZAAR [Suspect]
  2. ASPIRIN [Concomitant]
     Dosage: 1 TABLET DAILY
     Route: 048
  3. NEURONTIN [Concomitant]
     Dosage: 1 CAPSULE 3 (THREE) TIMES DAILY
     Route: 048
  4. PRAVACHOL [Concomitant]
     Dosage: 1 TABLET DAILY
     Route: 048
  5. SENOKOT S [Concomitant]
     Dosage: 1 DF, QD
     Route: 048
  6. CATAPRES [Concomitant]
     Dosage: 0.5 DF, BID, 1/2 PILL TWICE DAILY
     Route: 048

REACTIONS (1)
  - Drug hypersensitivity [Unknown]
